FAERS Safety Report 23760146 (Version 1)
Quarter: 2024Q2

REPORT INFORMATION
  Report Type: Spontaneous
  Country: US (occurrence: None)
  Receive Date: 20240419
  Receipt Date: 20240419
  Transmission Date: 20240716
  Serious: Yes (Hospitalization)
  Sender: FDA-Public Use
  Company Number: US-Encube-000676

PATIENT
  Age: 74 Year
  Sex: Female

DRUGS (8)
  1. LIDOCAINE [Suspect]
     Active Substance: LIDOCAINE
     Indication: Lumbar radiculopathy
     Dosage: 1%
     Route: 037
  2. IOHEXOL [Suspect]
     Active Substance: IOHEXOL
     Indication: Scan with contrast
     Route: 037
  3. DEPO-MEDROL [Suspect]
     Active Substance: METHYLPREDNISOLONE ACETATE
     Indication: Lumbar radiculopathy
     Dosage: 40 MG/ML
     Route: 037
  4. SODIUM CHLORIDE [Concomitant]
     Active Substance: SODIUM CHLORIDE
     Indication: Lumbar radiculopathy
     Route: 037
  5. LIDOCAINE [Suspect]
     Active Substance: LIDOCAINE
     Indication: Lumbar radiculopathy
     Dosage: 1%, 15 MONTHS AFTER THE PREVIOUS INJECTION
     Route: 037
  6. IOHEXOL [Suspect]
     Active Substance: IOHEXOL
     Indication: Scan with contrast
     Dosage: INJECTION, 15 MONTHS AFTER THE INJECTION
     Route: 037
  7. DEPO-MEDROL [Suspect]
     Active Substance: METHYLPREDNISOLONE ACETATE
     Indication: Lumbar radiculopathy
     Dosage: 40 MG/ML, 15 MONTHS AFTER THE INJECTION
     Route: 037
  8. SODIUM CHLORIDE [Concomitant]
     Active Substance: SODIUM CHLORIDE
     Indication: Epidural injection
     Dosage: 15 MONTHS AFTER THE INJECTION
     Route: 037

REACTIONS (4)
  - Meningitis aseptic [Recovered/Resolved]
  - Hypersensitivity [Recovered/Resolved]
  - Off label use [Unknown]
  - Accidental exposure to product [Unknown]
